FAERS Safety Report 10170259 (Version 2)
Quarter: 2014Q2

REPORT INFORMATION
  Report Type: Spontaneous
  Country: CA (occurrence: CA)
  Receive Date: 20140513
  Receipt Date: 20140613
  Transmission Date: 20141212
  Serious: Yes (Hospitalization)
  Sender: FDA-Public Use
  Company Number: PHHY2014CA057400

PATIENT
  Sex: Male

DRUGS (7)
  1. NILOTINIB [Suspect]
     Indication: CHRONIC MYELOID LEUKAEMIA
     Dosage: 300 MG, BID
     Route: 048
     Dates: start: 20120813
  2. ROSUVASTATIN [Suspect]
  3. CLOPIDOGREL [Concomitant]
  4. AMLODIPINE [Concomitant]
  5. TERAZOSIN [Concomitant]
  6. CARVEDILOL [Concomitant]
  7. VITAMIN D [Concomitant]

REACTIONS (5)
  - Rhabdomyolysis [Recovered/Resolved]
  - Renal failure [Recovered/Resolved]
  - Myalgia [Recovered/Resolved]
  - Muscular weakness [Recovered/Resolved]
  - Fatigue [Recovered/Resolved]
